FAERS Safety Report 17289475 (Version 4)
Quarter: 2020Q1

REPORT INFORMATION
  Report Type: Report from Study
  Country: JP (occurrence: JP)
  Receive Date: 20200120
  Receipt Date: 20200224
  Transmission Date: 20200409
  Serious: Yes (Hospitalization)
  Sender: FDA-Public Use
  Company Number: JP-EISAI MEDICAL RESEARCH-EC-2020-068559

PATIENT
  Age: 38 Year
  Sex: Female

DRUGS (20)
  1. VIMPAT [Suspect]
     Active Substance: LACOSAMIDE
     Route: 048
     Dates: start: 20180919
  2. MAGNESIUM OXIDE. [Concomitant]
     Active Substance: MAGNESIUM OXIDE
  3. SILECE [Concomitant]
     Active Substance: FLUNITRAZEPAM
  4. FYCOMPA [Suspect]
     Active Substance: PERAMPANEL
     Indication: PARTIAL SEIZURES
     Route: 048
     Dates: start: 20180807, end: 20180813
  5. FYCOMPA [Suspect]
     Active Substance: PERAMPANEL
     Route: 048
     Dates: start: 20180821, end: 20180827
  6. FYCOMPA [Suspect]
     Active Substance: PERAMPANEL
     Route: 048
     Dates: start: 20180914, end: 20190107
  7. FYCOMPA [Suspect]
     Active Substance: PERAMPANEL
     Route: 048
     Dates: start: 20190108
  8. BROTIZOLAM [Concomitant]
     Active Substance: BROTIZOLAM
  9. LAMICTAL [Suspect]
     Active Substance: LAMOTRIGINE
     Indication: PARTIAL SEIZURES
     Route: 048
  10. VIMPAT [Suspect]
     Active Substance: LACOSAMIDE
     Indication: PARTIAL SEIZURES
     Route: 048
     Dates: end: 20180918
  11. ETIZOLAM [Concomitant]
     Active Substance: ETIZOLAM
  12. FYCOMPA [Suspect]
     Active Substance: PERAMPANEL
     Route: 048
     Dates: start: 20180814, end: 20180820
  13. FYCOMPA [Suspect]
     Active Substance: PERAMPANEL
     Route: 048
     Dates: start: 20180828, end: 20180913
  14. TEGRETOL [Concomitant]
     Active Substance: CARBAMAZEPINE
  15. DOMPERIDONE [Concomitant]
     Active Substance: DOMPERIDONE
  16. LOQOA [Concomitant]
  17. ROZEREM [Concomitant]
     Active Substance: RAMELTEON
  18. LOXONIN [Concomitant]
     Active Substance: LOXOPROFEN SODIUM
  19. OLANZAPINE. [Concomitant]
     Active Substance: OLANZAPINE
  20. SENNOSIDE [Concomitant]
     Active Substance: SENNOSIDES

REACTIONS (2)
  - Dizziness [Recovered/Resolved]
  - Balance disorder [Recovered/Resolved]

NARRATIVE: CASE EVENT DATE: 20180901
